FAERS Safety Report 19158674 (Version 1)
Quarter: 2021Q2

REPORT INFORMATION
  Report Type: Spontaneous
  Country: US (occurrence: US)
  Receive Date: 20210420
  Receipt Date: 20210420
  Transmission Date: 20210717
  Serious: Yes (Other)
  Sender: FDA-Public Use
  Company Number: US-COOPERSURGICAL, INC.-US-2021CPS000980

PATIENT
  Age: 45 Year
  Sex: Female
  Weight: 68.48 kg

DRUGS (1)
  1. PARAGARD T 380A [Suspect]
     Active Substance: COPPER
     Indication: INTERMENSTRUAL BLEEDING
     Dosage: UNK
     Route: 015
     Dates: start: 20140505, end: 20210407

REACTIONS (2)
  - Device expulsion [Recovered/Resolved]
  - Papilloma viral infection [Unknown]

NARRATIVE: CASE EVENT DATE: 20210407
